APPROVED DRUG PRODUCT: FLUCONAZOLE IN SODIUM CHLORIDE 0.9%
Active Ingredient: FLUCONAZOLE
Strength: 100MG/50ML (2MG/ML)
Dosage Form/Route: INJECTABLE;INJECTION
Application: A076087 | Product #002
Applicant: HIKMA PHARMACEUTICALS USA INC
Approved: Sep 26, 2008 | RLD: No | RS: No | Type: RX